FAERS Safety Report 8690777 (Version 6)
Quarter: 2013Q1

REPORT INFORMATION
  Report Type: Spontaneous
  Country: US (occurrence: US)
  Receive Date: 20120728
  Receipt Date: 20130305
  Transmission Date: 20140127
  Serious: Yes (Death, Hospitalization, Other)
  Sender: FDA-Public Use
  Company Number: US-009507513-1207USA006493

PATIENT
  Sex: Female

DRUGS (3)
  1. FOSAMAX [Suspect]
     Indication: OSTEOPOROSIS
     Dosage: 10 MG, UNK
     Route: 048
  2. FOSAMAX [Suspect]
     Dosage: 70 UNK, UNK
     Route: 048
  3. FOSAMAX [Suspect]
     Indication: OSTEOPOROSIS
     Route: 048

REACTIONS (19)
  - Clostridium difficile colitis [Fatal]
  - Femur fracture [Recovering/Resolving]
  - Open reduction of fracture [Unknown]
  - Vertigo [Fatal]
  - Lung disorder [Fatal]
  - Pancytopenia [Unknown]
  - Breast cancer [Unknown]
  - Low turnover osteopathy [Unknown]
  - Radiotherapy [Unknown]
  - Chemotherapy [Unknown]
  - Breast lump removal [Unknown]
  - Breast lump removal [Unknown]
  - Hypertension [Unknown]
  - Hypercholesterolaemia [Unknown]
  - Transient ischaemic attack [Unknown]
  - Nausea [Unknown]
  - Fall [Unknown]
  - Fall [Unknown]
  - Pubis fracture [Unknown]
